FAERS Safety Report 6078201-9 (Version None)
Quarter: 2009Q1

REPORT INFORMATION
  Report Type: 
  Country: None (occurrence: None)
  Receive Date: 20090213
  Receipt Date: 20090209
  Transmission Date: 20090719
  Serious: Yes (Hospitalization)
  Sender: FDA-Public Use
  Company Number: PHHY2008JP28915

PATIENT
  Age: 78 Year
  Sex: Male

DRUGS (1)
  1. NEORAL [Suspect]
     Indication: NEPHROTIC SYNDROME
     Dosage: 50 MG/DAY
     Route: 048
     Dates: start: 20081015

REACTIONS (2)
  - BLOOD CHLORIDE DECREASED [None]
  - HYPONATRAEMIA [None]
